FAERS Safety Report 18649316 (Version 4)
Quarter: 2021Q2

REPORT INFORMATION
  Report Type: Report from Study
  Country: None (occurrence: CA)
  Receive Date: 20201222
  Receipt Date: 20210520
  Transmission Date: 20210717
  Serious: Yes (Congenital Anomaly, Other)
  Sender: FDA-Public Use
  Company Number: CA-ABBVIE-20K-028-3699939-00

PATIENT
  Sex: Female

DRUGS (5)
  1. TIVICAY [Suspect]
     Active Substance: DOLUTEGRAVIR SODIUM
     Indication: MATERNAL EXPOSURE TIMING UNSPECIFIED
     Route: 064
  2. RITONAVIR. [Suspect]
     Active Substance: RITONAVIR
     Indication: MATERNAL EXPOSURE TIMING UNSPECIFIED
     Route: 064
  3. DARUNAVIR [Suspect]
     Active Substance: DARUNAVIR
     Indication: MATERNAL EXPOSURE TIMING UNSPECIFIED
     Route: 064
  4. INTELENCE [Suspect]
     Active Substance: ETRAVIRINE
     Indication: MATERNAL EXPOSURE TIMING UNSPECIFIED
     Route: 064
  5. EMTRICITABINE + TENOFOVIR DISOPROXIL FUMARATE [Suspect]
     Active Substance: EMTRICITABINE\TENOFOVIR DISOPROXIL FUMARATE
     Indication: MATERNAL EXPOSURE TIMING UNSPECIFIED
     Route: 064

REACTIONS (8)
  - Low birth weight baby [Unknown]
  - Cholestasis [Unknown]
  - Hypoglycaemia [Unknown]
  - Foetal exposure during pregnancy [Unknown]
  - Cerebral haemorrhage [Unknown]
  - Acute respiratory distress syndrome [Unknown]
  - Hyponatraemia [Unknown]
  - Anaemia [Unknown]
